FAERS Safety Report 20789468 (Version 3)
Quarter: 2022Q2

REPORT INFORMATION
  Report Type: Report from Study
  Country: AR (occurrence: AR)
  Receive Date: 20220505
  Receipt Date: 20220621
  Transmission Date: 20220720
  Serious: Yes (Other)
  Sender: FDA-Public Use
  Company Number: AR-NOVARTISPH-NVSC2021AR246441

PATIENT
  Age: 75 Year
  Sex: Female

DRUGS (2)
  1. KISQALI [Suspect]
     Active Substance: RIBOCICLIB
     Indication: Breast cancer metastatic
     Dosage: 600 MG, QD
     Route: 048
     Dates: start: 20200901
  2. LETROZOLE [Suspect]
     Active Substance: LETROZOLE
     Indication: Product used for unknown indication
     Dosage: UNK
     Route: 065

REACTIONS (9)
  - Cataract [Unknown]
  - Condition aggravated [Unknown]
  - Dysphonia [Unknown]
  - Osteoarthritis [Unknown]
  - Joint swelling [Unknown]
  - Eye allergy [Unknown]
  - Peripheral swelling [Unknown]
  - Arthralgia [Unknown]
  - Trigger finger [Unknown]

NARRATIVE: CASE EVENT DATE: 20220313
